FAERS Safety Report 14590626 (Version 1)
Quarter: 2018Q1

REPORT INFORMATION
  Report Type: Spontaneous
  Country: US (occurrence: US)
  Receive Date: 20180301
  Receipt Date: 20180301
  Transmission Date: 20180509
  Serious: Yes (Hospitalization)
  Sender: FDA-Public Use
  Company Number: None

PATIENT
  Age: 34 Year
  Sex: Female

DRUGS (2)
  1. NUVARING [Suspect]
     Active Substance: ETHINYL ESTRADIOL\ETONOGESTREL
     Indication: CONTRACEPTION
     Dosage: ?          OTHER FREQUENCY:EVERY 3 WEEKS;?
     Route: 067
     Dates: start: 20060201, end: 20110201
  2. IUD NOS [Concomitant]
     Active Substance: COPPER OR LEVONORGESTREL

REACTIONS (2)
  - Abortion [None]
  - Transient ischaemic attack [None]

NARRATIVE: CASE EVENT DATE: 20110201
